FAERS Safety Report 14472735 (Version 1)
Quarter: 2018Q1

REPORT INFORMATION
  Report Type: Report from Study
  Country: None (occurrence: US)
  Receive Date: 20180201
  Receipt Date: 20180201
  Transmission Date: 20180509
  Serious: Yes (Other)
  Sender: FDA-Public Use
  Company Number: US-ABBVIE-18K-163-2213975-00

PATIENT
  Age: 64 Year
  Sex: Male
  Weight: 76.27 kg

DRUGS (2)
  1. HUMIRA [Suspect]
     Active Substance: ADALIMUMAB
     Indication: SERONEGATIVE ARTHRITIS
     Route: 058
     Dates: start: 2013, end: 201706
  2. HUMIRA [Suspect]
     Active Substance: ADALIMUMAB
     Route: 058
     Dates: start: 201712

REACTIONS (10)
  - Joint instability [Recovering/Resolving]
  - Post procedural complication [Recovered/Resolved]
  - Surgery [Unknown]
  - Blood iron decreased [Recovered/Resolved]
  - Arthritis [Recovered/Resolved]
  - Wrist surgery [Unknown]
  - Procedural nausea [Recovered/Resolved]
  - Tendonitis [Recovered/Resolved]
  - Shoulder operation [Unknown]
  - Device fastener issue [Recovered/Resolved]

NARRATIVE: CASE EVENT DATE: 201705
